FAERS Safety Report 5104352-9 (Version None)
Quarter: 2006Q3

REPORT INFORMATION
  Report Type: 
  Country: None (occurrence: None)
  Receive Date: 20060911
  Receipt Date: 20060911
  Transmission Date: 20061208
  Serious: Yes (Hospitalization)
  Sender: FDA-Public Use
  Company Number: None

PATIENT
  Age: 52 Year
  Sex: Female
  Weight: 52.1637 kg

DRUGS (1)
  1. CARBOPLATIN [Suspect]
     Indication: LUNG CANCER METASTATIC
     Dosage: 550 MG   INFUSE OVER 30 MIN   IV
     Route: 042
     Dates: start: 20060626, end: 20060626

REACTIONS (4)
  - ABDOMINAL PAIN UPPER [None]
  - DYSPNOEA [None]
  - HYPERHIDROSIS [None]
  - INFUSION RELATED REACTION [None]
